FAERS Safety Report 21381103 (Version 6)
Quarter: 2024Q2

REPORT INFORMATION
  Report Type: Report from Study
  Country: US (occurrence: US)
  Receive Date: 20220927
  Receipt Date: 20240610
  Transmission Date: 20240716
  Serious: Yes (Other)
  Sender: FDA-Public Use
  Company Number: US-HORIZON THERAPEUTICS-HZN-2022-007263

PATIENT
  Age: 40 Year
  Sex: Male

DRUGS (4)
  1. KRYSTEXXA [Suspect]
     Active Substance: PEGLOTICASE
     Indication: Gout
     Dosage: UNK UNK, Q2WK (FIRST INFUSION)
     Route: 042
     Dates: start: 2012
  2. KRYSTEXXA [Suspect]
     Active Substance: PEGLOTICASE
     Dosage: UNK INFUSION (UNKNOWN)
     Route: 042
     Dates: start: 20170301
  3. KRYSTEXXA [Suspect]
     Active Substance: PEGLOTICASE
     Dosage: UNK, Q6WK (UNKNOWN INFUSION EVERY 6 WEEKS)
     Route: 042
     Dates: start: 202204
  4. KRYSTEXXA [Suspect]
     Active Substance: PEGLOTICASE
     Dosage: UNK, Q6WK (6 WEEK INFUSION SCHEDULE)
     Route: 042
     Dates: start: 2022

REACTIONS (3)
  - Hypertrophic cardiomyopathy [Not Recovered/Not Resolved]
  - Blood uric acid abnormal [Unknown]
  - Off label use [Unknown]
